FAERS Safety Report 25930143 (Version 1)
Quarter: 2025Q4

REPORT INFORMATION
  Report Type: Spontaneous
  Country: CN (occurrence: CN)
  Receive Date: 20251016
  Receipt Date: 20251016
  Transmission Date: 20260118
  Serious: Yes (Life-Threatening, Other)
  Sender: BAYER HEALTHCARE PHARMACEUTICALS INC.
  Company Number: CN-BAYER-2025A136560

PATIENT
  Age: 74 Year
  Sex: Female
  Weight: 50 kg

DRUGS (2)
  1. ULTRAVIST [Suspect]
     Active Substance: IOPROMIDE
     Indication: Peripheral arteriogram
     Dosage: 80 ML, ONCE
     Route: 042
     Dates: start: 20250930, end: 20250930
  2. ULTRAVIST [Suspect]
     Active Substance: IOPROMIDE
     Indication: Pain in extremity

REACTIONS (5)
  - Contrast media allergy [Recovering/Resolving]
  - Confusional state [Recovered/Resolved]
  - Urinary incontinence [Recovered/Resolved]
  - Unresponsive to stimuli [None]
  - Abdominal pain [None]

NARRATIVE: CASE EVENT DATE: 20250930
